FAERS Safety Report 7469466-7 (Version None)
Quarter: 2011Q2

REPORT INFORMATION
  Report Type: 
  Country: None (occurrence: None)
  Receive Date: 20110429
  Receipt Date: 20110414
  Transmission Date: 20111010
  Serious: Yes (Other)
  Sender: FDA-Public Use
  Company Number: AUR-APU-2011-01305

PATIENT
  Age: 87 Year
  Sex: Male

DRUGS (1)
  1. FINASTERIDE [Suspect]
     Dosage: 5MG - DAILY

REACTIONS (3)
  - SWELLING FACE [None]
  - DYSPNOEA [None]
  - RHINORRHOEA [None]
